FAERS Safety Report 22016548 (Version 1)
Quarter: 2023Q1

REPORT INFORMATION
  Report Type: Spontaneous
  Country: ES (occurrence: ES)
  Receive Date: 20230221
  Receipt Date: 20230221
  Transmission Date: 20230418
  Serious: Yes (Life-Threatening, Hospitalization, Disabling)
  Sender: FDA-Public Use
  Company Number: ES-Atnahs Limited-ATNAHS20230200536

PATIENT
  Age: 50 Year
  Sex: Female
  Weight: 57 kg

DRUGS (3)
  1. DIAZEPAM [Suspect]
     Active Substance: DIAZEPAM
     Indication: Chest discomfort
     Dosage: 5 MG TRES VECES AL DIA
     Route: 050
     Dates: start: 20201125, end: 20220415
  2. Vacuna COVID-19 [Concomitant]
     Indication: Product used for unknown indication
     Dosage: LAS TRES DOSIS
     Route: 050
  3. IBUPROFEN [Concomitant]
     Active Substance: IBUPROFEN
     Indication: Antiinflammatory therapy
     Route: 050
     Dates: start: 20210103

REACTIONS (3)
  - Recall phenomenon [Recovering/Resolving]
  - Seizure [Recovering/Resolving]
  - Asthenia [Recovering/Resolving]

NARRATIVE: CASE EVENT DATE: 20210210
